FAERS Safety Report 10048609 (Version 1)
Quarter: 2014Q1

REPORT INFORMATION
  Report Type: Spontaneous
  Country: US (occurrence: US)
  Receive Date: 20140331
  Receipt Date: 20140331
  Transmission Date: 20141002
  Serious: No
  Sender: FDA-Public Use
  Company Number: US-TEVA-467669USA

PATIENT
  Age: 45 Year
  Sex: Female

DRUGS (2)
  1. NUVIGIL [Suspect]
     Dosage: 150 MILLIGRAM DAILY;
  2. NUVIGIL [Suspect]
     Dosage: 75 MILLIGRAM DAILY;

REACTIONS (1)
  - Nausea [Recovered/Resolved]
